FAERS Safety Report 20795754 (Version 14)
Quarter: 2024Q1

REPORT INFORMATION
  Report Type: Spontaneous
  Country: US (occurrence: US)
  Receive Date: 20220506
  Receipt Date: 20240208
  Transmission Date: 20240409
  Serious: No
  Sender: FDA-Public Use
  Company Number: US-PFIZER INC-202200578719

PATIENT
  Age: 73 Year
  Sex: Female
  Weight: 56.7 kg

DRUGS (14)
  1. IBRANCE [Suspect]
     Active Substance: PALBOCICLIB
     Indication: Breast cancer metastatic
     Dosage: 125 MG DAILY, CYCLIC
     Route: 048
     Dates: start: 20220325, end: 20220415
  2. IBRANCE [Suspect]
     Active Substance: PALBOCICLIB
     Dosage: 125 MG, ONCE DAILY FOR 21 DAYS, THEN OFF
     Dates: start: 202204
  3. IBRANCE [Suspect]
     Active Substance: PALBOCICLIB
     Dosage: 100 MG DAILY, CYCLIC
     Route: 048
     Dates: start: 20220504, end: 20220926
  4. IBRANCE [Suspect]
     Active Substance: PALBOCICLIB
     Dosage: TAKE 1 TABLET DAILY FOLLOWED BY 7 DAYS OFF, REPEAT EVERY 28 DAYS
     Route: 048
     Dates: start: 20221024
  5. IBRANCE [Suspect]
     Active Substance: PALBOCICLIB
     Dosage: 100 MG, CYCLIC
     Route: 048
  6. FASLODEX [Concomitant]
     Active Substance: FULVESTRANT
     Indication: Oestrogen therapy
     Dosage: UNK, MONTHLY (UNKNOWN DOSE, 2 SHOTS EVERY 4 WEEKS)
  7. FASLODEX [Concomitant]
     Active Substance: FULVESTRANT
     Dosage: 500 MG (ONCE, 1 OF 12 CYCLES)
     Route: 030
  8. ZOMETA [Concomitant]
     Active Substance: ZOLEDRONIC ACID
     Indication: Bone density increased
     Dosage: UNK, INFUSION ONCE EVERY 3 MONTHS
  9. METOPROLOL [Concomitant]
     Active Substance: METOPROLOL
     Indication: Hypertension
     Dosage: 25 MG
  10. RAMIPRIL [Concomitant]
     Active Substance: RAMIPRIL
     Indication: Hypertension
     Dosage: 1.25 MG
  11. ISOSORBIDE MONONITRATE [Concomitant]
     Active Substance: ISOSORBIDE MONONITRATE
     Indication: Angina pectoris
     Dosage: 60 MG
  12. ISOSORBIDE MONONITRATE [Concomitant]
     Active Substance: ISOSORBIDE MONONITRATE
     Indication: Chest pain
  13. ROSUVASTATIN [Concomitant]
     Active Substance: ROSUVASTATIN
     Indication: Blood cholesterol
     Dosage: 20 MG
  14. ASPIRIN [Concomitant]
     Active Substance: ASPIRIN
     Indication: Cardiac disorder
     Dosage: 81 MG

REACTIONS (14)
  - Headache [Unknown]
  - Nausea [Unknown]
  - Platelet count decreased [Unknown]
  - Full blood count decreased [Unknown]
  - Fatigue [Unknown]
  - Stress [Unknown]
  - Asthenia [Unknown]
  - Somnolence [Unknown]
  - Alopecia [Unknown]
  - Oral herpes [Unknown]
  - White blood cell count decreased [Unknown]
  - Weight fluctuation [Unknown]
  - Brain fog [Unknown]
  - Intercepted product prescribing error [Unknown]
